FAERS Safety Report 9276167 (Version 1)
Quarter: 2012Q4

REPORT INFORMATION
  Report Type: Spontaneous
  Country: US (occurrence: None)
  Receive Date: 20121012
  Receipt Date: 20121012
  Transmission Date: 20130627
  Serious: Yes (Other)
  Sender: FDA-Public Use
  Company Number: US-1194159

PATIENT
  Age: 67 Year
  Sex: Male

DRUGS (12)
  1. TRAVATAN Z [Suspect]
     Indication: OPEN ANGLE GLAUCOMA
     Dosage: (1 Gtt Ophthalmic)
     Route: 047
     Dates: start: 201108
  2. THYROID PREPARATIONS [Concomitant]
  3. GLUCOSAMINE [Concomitant]
  4. GINKO [Concomitant]
  5. VITAMIN E [Concomitant]
  6. VITAMIN C [Concomitant]
  7. MAGNESIUM [Concomitant]
  8. MONASCUS PURPUREUS [Concomitant]
  9. OMEGA-3 [Concomitant]
  10. FLAXSEED OIL [Concomitant]
  11. NIACIN [Concomitant]
  12. LUTEIN [Concomitant]

REACTIONS (5)
  - Dyspnoea [None]
  - Urticaria [None]
  - Wheezing [None]
  - Rash [None]
  - Medication error [None]
